FAERS Safety Report 5292315-2 (Version None)
Quarter: 2007Q2

REPORT INFORMATION
  Report Type: 
  Country: None (occurrence: None)
  Receive Date: 20070410
  Receipt Date: 20070404
  Transmission Date: 20071010
  Serious: Yes (Other)
  Sender: FDA-Public Use
  Company Number: HQWYE693007APR06

PATIENT
  Age: 50 Year
  Sex: Female

DRUGS (1)
  1. PREMELLE [Suspect]
     Indication: HORMONE REPLACEMENT THERAPY
     Dosage: UNKNOWN
     Route: 048
     Dates: start: 20050705

REACTIONS (1)
  - STEVENS-JOHNSON SYNDROME [None]
